FAERS Safety Report 20033270 (Version 2)
Quarter: 2021Q4

REPORT INFORMATION
  Report Type: Spontaneous
  Country: PT (occurrence: PT)
  Receive Date: 20211104
  Receipt Date: 20211123
  Transmission Date: 20220303
  Serious: Yes (Other)
  Sender: FDA-Public Use
  Company Number: PT-GLAXOSMITHKLINE-PTCH2021GSK078591

PATIENT
  Age: 65 Year
  Sex: Male

DRUGS (2)
  1. IBUPROFEN [Suspect]
     Active Substance: IBUPROFEN
     Indication: Product used for unknown indication
     Dosage: 4 G
  2. ACETAMINOPHEN [Suspect]
     Active Substance: ACETAMINOPHEN
     Indication: Product used for unknown indication
     Dosage: 8 G

REACTIONS (10)
  - Acute kidney injury [Recovered/Resolved]
  - Erosive oesophagitis [Recovered/Resolved]
  - Haemolysis [Recovered/Resolved]
  - Liver injury [Recovered/Resolved]
  - Acid-base balance disorder mixed [Unknown]
  - Nausea [Recovered/Resolved]
  - Discoloured vomit [Recovered/Resolved]
  - Abdominal pain [Recovered/Resolved]
  - Jaundice [Recovered/Resolved]
  - Toxicity to various agents [Recovered/Resolved]
